FAERS Safety Report 13778056 (Version 2)
Quarter: 2017Q3

REPORT INFORMATION
  Report Type: Spontaneous
  Country: US (occurrence: US)
  Receive Date: 20170721
  Receipt Date: 20170904
  Transmission Date: 20171127
  Serious: Yes (Hospitalization)
  Sender: FDA-Public Use
  Company Number: US-ASTRAZENECA-2017SE73864

PATIENT
  Age: 982 Month
  Sex: Male
  Weight: 84.4 kg

DRUGS (1)
  1. SYMBICORT [Suspect]
     Active Substance: BUDESONIDE\FORMOTEROL FUMARATE DIHYDRATE
     Indication: CHRONIC OBSTRUCTIVE PULMONARY DISEASE
     Dosage: 160-4.5 MCG, 2 PUFFS, TWICE A DAY
     Route: 055

REACTIONS (8)
  - Infection [Unknown]
  - Arrhythmia [Not Recovered/Not Resolved]
  - Device issue [Unknown]
  - Kidney infection [Recovered/Resolved]
  - Staphylococcal infection [Unknown]
  - Pneumonia [Recovered/Resolved]
  - Malaise [Not Recovered/Not Resolved]
  - Drug dose omission [Unknown]

NARRATIVE: CASE EVENT DATE: 201705
